FAERS Safety Report 5316774-1 (Version None)
Quarter: 2007Q2

REPORT INFORMATION
  Report Type: 
  Country: None (occurrence: None)
  Receive Date: 20070501
  Receipt Date: 20070501
  Transmission Date: 20071010
  Serious: No
  Sender: FDA-Public Use
  Company Number: None

PATIENT
  Age: 74 Year
  Sex: Male

DRUGS (1)
  1. BORTEZOMIB [Suspect]
     Indication: MULTIPLE MYELOMA
     Dosage: 2MG OTHER IV
     Route: 042
     Dates: start: 20070308, end: 20070308

REACTIONS (3)
  - BACK PAIN [None]
  - MUSCLE SPASMS [None]
  - MYALGIA [None]
